FAERS Safety Report 6343615-6 (Version None)
Quarter: 2009Q3

REPORT INFORMATION
  Report Type: 
  Country: None (occurrence: None)
  Receive Date: 20090908
  Receipt Date: 20090901
  Transmission Date: 20100115
  Serious: Yes (Hospitalization)
  Sender: FDA-Public Use
  Company Number: FR-AVENTIS-200913253FR

PATIENT
  Age: 80 Year
  Sex: Female

DRUGS (11)
  1. LASIX [Suspect]
     Route: 048
     Dates: end: 20090628
  2. ESIDRIX [Suspect]
     Route: 048
     Dates: end: 20090628
  3. PREVISCAN                          /00789001/ [Concomitant]
     Indication: DRUG USE FOR UNKNOWN INDICATION
     Route: 048
  4. PRAXILENE [Concomitant]
     Indication: DRUG USE FOR UNKNOWN INDICATION
     Route: 048
  5. STILNOX                            /00914901/ [Concomitant]
     Indication: DRUG USE FOR UNKNOWN INDICATION
     Route: 048
  6. TAHOR [Concomitant]
     Indication: DRUG USE FOR UNKNOWN INDICATION
     Route: 048
  7. PROZAC [Concomitant]
     Indication: DRUG USE FOR UNKNOWN INDICATION
     Route: 048
  8. FORLAX [Concomitant]
     Indication: DRUG USE FOR UNKNOWN INDICATION
     Route: 048
  9. LANTUS [Concomitant]
     Indication: DRUG USE FOR UNKNOWN INDICATION
     Route: 058
  10. ACTRAPID [Concomitant]
     Indication: DRUG USE FOR UNKNOWN INDICATION
  11. OROKEN [Concomitant]
     Route: 048

REACTIONS (4)
  - DRUG INTERACTION [None]
  - HYPERGLYCAEMIC HYPEROSMOLAR NONKETOTIC SYNDROME [None]
  - HYPOKALAEMIA [None]
  - HYPONATRAEMIA [None]
